FAERS Safety Report 19253413 (Version 1)
Quarter: 2021Q2

REPORT INFORMATION
  Report Type: Spontaneous
  Country: GB (occurrence: GB)
  Receive Date: 20210513
  Receipt Date: 20210513
  Transmission Date: 20210717
  Serious: Yes (Other)
  Sender: FDA-Public Use
  Company Number: GB-ACCORD-224785

PATIENT
  Age: 18 Year
  Sex: Female
  Weight: 77 kg

DRUGS (1)
  1. SERTRALINE [Suspect]
     Active Substance: SERTRALINE HYDROCHLORIDE
     Indication: DEPRESSION
     Dosage: 50MG FOR SEVERAL MONTHS, 100MG UNTIL A MONTH AGO, THEN 2 WEEKS 75MG AND THEN 50MG
     Route: 048
     Dates: start: 20190601

REACTIONS (7)
  - Anxiety [Unknown]
  - Tinnitus [Unknown]
  - Vertigo [Unknown]
  - Drug withdrawal syndrome [Not Recovered/Not Resolved]
  - Feeling abnormal [Unknown]
  - Electric shock sensation [Unknown]
  - Dizziness [Unknown]

NARRATIVE: CASE EVENT DATE: 20210420
